FAERS Safety Report 20097608 (Version 1)
Quarter: 2021Q4

REPORT INFORMATION
  Report Type: Spontaneous
  Country: US (occurrence: None)
  Receive Date: 20211122
  Receipt Date: 20211122
  Transmission Date: 20220303
  Serious: Yes (Hospitalization)
  Sender: FDA-Public Use
  Company Number: None

PATIENT
  Sex: Male

DRUGS (23)
  1. NUCALA [Suspect]
     Active Substance: MEPOLIZUMAB
     Indication: Respiratory disorder
     Dosage: OTHER QUANTITY : 1 PEN;?OTHER FREQUENCY : Q4WK;?
     Route: 058
     Dates: start: 20210714
  2. ACETYLCYST [Concomitant]
  3. CIPROFLOXACIN [Concomitant]
     Active Substance: CIPROFLOXACIN
  4. DICLOFENAC [Concomitant]
     Active Substance: DICLOFENAC
  5. DOXYCYCLHYC [Concomitant]
  6. ELIQUIS [Concomitant]
     Active Substance: APIXABAN
  7. FINASTERIDE [Concomitant]
     Active Substance: FINASTERIDE
  8. FOLIC ACID [Concomitant]
     Active Substance: FOLIC ACID
  9. FUROSEMIDE [Concomitant]
     Active Substance: FUROSEMIDE
  10. ACETAMINOPHEN\HYDROCODONE [Concomitant]
     Active Substance: ACETAMINOPHEN\HYDROCODONE
  11. ISOSORB MOMO [Concomitant]
  12. KETOCONAZOLE SHA [Concomitant]
  13. LASIX [Concomitant]
     Active Substance: FUROSEMIDE
  14. LEVOTHYROXINE [Concomitant]
     Active Substance: LEVOTHYROXINE
  15. METOPROLOL TARTRATE [Concomitant]
     Active Substance: METOPROLOL TARTRATE
  16. MONTELUKAST [Concomitant]
     Active Substance: MONTELUKAST SODIUM
  17. POT CHLORIDE ER [Concomitant]
  18. PRAVASTATIN [Concomitant]
     Active Substance: PRAVASTATIN
  19. PREDNISONE [Concomitant]
     Active Substance: PREDNISONE
  20. SERTRALINE [Concomitant]
     Active Substance: SERTRALINE HYDROCHLORIDE
  21. TAMSULOSIN [Concomitant]
     Active Substance: TAMSULOSIN
  22. TRELEGY ELLIPTA [Concomitant]
     Active Substance: FLUTICASONE FUROATE\UMECLIDINIUM BROMIDE\VILANTEROL TRIFENATATE
  23. XARELTO [Concomitant]
     Active Substance: RIVAROXABAN

REACTIONS (2)
  - Chest pain [None]
  - Mitral valve prolapse [None]
